FAERS Safety Report 8814482 (Version 1)
Quarter: 2012Q4

REPORT INFORMATION
  Report Type: 
  Country: US (occurrence: US)
  Receive Date: 20120928
  Receipt Date: 20120928
  Transmission Date: 20130627
  Serious: Yes (Death)
  Sender: FDA-Public Use
  Company Number: US-SANOFI-AVENTIS-2012SA068776

PATIENT
  Sex: Male

DRUGS (4)
  1. ZALTRAP [Suspect]
     Indication: METASTATIC COLORECTAL CANCER
     Route: 041
  2. LEUCOVORIN CALCIUM [Suspect]
     Indication: METASTATIC COLORECTAL CANCER
     Route: 042
  3. 5-FU [Suspect]
     Indication: METASTATIC COLORECTAL CANCER
     Route: 042
  4. IRINOTECAN HYDROCHLORIDE [Suspect]
     Indication: METASTATIC COLORECTAL CANCER
     Route: 042

REACTIONS (1)
  - Death [Fatal]
